FAERS Safety Report 8305199-2 (Version None)
Quarter: 2012Q2

REPORT INFORMATION
  Report Type: 
  Country: None (occurrence: None)
  Receive Date: 20120423
  Receipt Date: 20120417
  Transmission Date: 20120825
  Serious: Yes (Life-Threatening, Hospitalization, Other)
  Sender: FDA-Public Use
  Company Number: US-ASTRAZENECA-2012SE25291

PATIENT
  Age: 69 Year
  Sex: Female

DRUGS (9)
  1. LISINOPRIL [Suspect]
     Indication: BLOOD PRESSURE
     Dosage: 30
     Route: 048
  2. ADVAIR DISKUS 100/50 [Concomitant]
  3. NEXIUM [Suspect]
     Indication: GASTROOESOPHAGEAL REFLUX DISEASE
     Route: 048
  4. HYDROCHLOROTHIAZIDE [Suspect]
     Indication: BLOOD PRESSURE
     Dosage: 25
     Route: 065
  5. ASPIRIN [Concomitant]
  6. VENTOLIN [Concomitant]
  7. PONTANOL [Concomitant]
  8. LIQUID TEARS [Concomitant]
  9. MAGNESIUM [Concomitant]

REACTIONS (9)
  - RECURRENT CANCER [None]
  - ATRIAL FIBRILLATION [None]
  - BREAST CANCER [None]
  - CEREBROVASCULAR ACCIDENT [None]
  - DEVICE MALFUNCTION [None]
  - ASTHMA [None]
  - EYE DISORDER [None]
  - ADVERSE EVENT [None]
  - INTENTIONAL DRUG MISUSE [None]
